FAERS Safety Report 16363018 (Version 1)
Quarter: 2019Q2

REPORT INFORMATION
  Report Type: Spontaneous
  Country: US (occurrence: US)
  Receive Date: 20190528
  Receipt Date: 20190528
  Transmission Date: 20190711
  Serious: Yes (Hospitalization)
  Sender: FDA-Public Use
  Company Number: US-OTSUKA-2019_020610

PATIENT
  Sex: Male

DRUGS (1)
  1. SAMSCA [Suspect]
     Active Substance: TOLVAPTAN
     Indication: BLOOD SODIUM DECREASED
     Dosage: 15 MG, QD
     Route: 065
     Dates: end: 201901

REACTIONS (3)
  - Product dose omission [Unknown]
  - Blood sodium decreased [Not Recovered/Not Resolved]
  - Inability to afford medication [Unknown]

NARRATIVE: CASE EVENT DATE: 2018
